FAERS Safety Report 4993076-4 (Version None)
Quarter: 2006Q1

REPORT INFORMATION
  Report Type: 
  Country: None (occurrence: None)
  Receive Date: 20060313
  Receipt Date: 20060118
  Transmission Date: 20060701
  Serious: No
  Sender: FDA-Public Use
  Company Number: 2006-BP-00648BP

PATIENT
  Age: 63 Year
  Sex: Male

DRUGS (11)
  1. SPIRIVA [Suspect]
     Indication: CHRONIC OBSTRUCTIVE PULMONARY DISEASE
     Dosage: 18 MCG (18 MCG),IH
     Dates: end: 20060114
  2. FLOMAX [Suspect]
     Indication: BENIGN PROSTATIC HYPERPLASIA
  3. ACCUPRIL [Suspect]
     Indication: HYPERTENSION
  4. MOBIC [Suspect]
     Dosage: 15 MG (7.5 MG ,7.5 MG BID)
  5. PRIMIDONE [Suspect]
     Indication: TREMOR
     Dosage: 50 MG
  6. FLEXERIL [Suspect]
  7. TRANSENE (CLORAZEPATE DIPOTASSIUM) [Concomitant]
  8. ENBREL [Concomitant]
  9. EBERCON [Concomitant]
  10. ASPIRIN [Concomitant]
  11. CALCIUM GLUCONATE [Concomitant]

REACTIONS (3)
  - LIBIDO DECREASED [None]
  - SOMNOLENCE [None]
  - TREMOR [None]
